FAERS Safety Report 22140858 (Version 1)
Quarter: 2023Q1

REPORT INFORMATION
  Report Type: Spontaneous
  Country: BE (occurrence: None)
  Receive Date: 20230327
  Receipt Date: 20230327
  Transmission Date: 20230417
  Serious: Yes (Other)
  Sender: FDA-Public Use
  Company Number: 2023A066438

PATIENT
  Age: 59 Year
  Sex: Male

DRUGS (3)
  1. CRESTOR [Suspect]
     Active Substance: ROSUVASTATIN CALCIUM
     Route: 048
  2. COMIRNATY [Suspect]
     Active Substance: TOZINAMERAN
  3. ZOCOR [Suspect]
     Active Substance: SIMVASTATIN

REACTIONS (7)
  - Muscle rupture [Unknown]
  - Polymyalgia rheumatica [Unknown]
  - C-reactive protein increased [Unknown]
  - Carpal tunnel syndrome [Unknown]
  - Tendon disorder [Unknown]
  - Muscular weakness [Unknown]
  - Myalgia [Unknown]
